FAERS Safety Report 17718622 (Version 1)
Quarter: 2020Q2

REPORT INFORMATION
  Report Type: Spontaneous
  Country: AU (occurrence: AU)
  Receive Date: 20200428
  Receipt Date: 20200428
  Transmission Date: 20200714
  Serious: Yes (Other)
  Sender: FDA-Public Use
  Company Number: AU-BAXTER-2020BAX008618

PATIENT
  Sex: Male

DRUGS (3)
  1. RIXIMYO [Suspect]
     Active Substance: RITUXIMAB
     Dosage: CYCLE 2
     Route: 065
  2. SODIUM CHLORIDE (VIAFLO) 1000ML [Suspect]
     Active Substance: SODIUM CHLORIDE
     Indication: MEDICATION DILUTION
     Dosage: CYCLE 2
     Route: 065
  3. RIXIMYO [Suspect]
     Active Substance: RITUXIMAB
     Indication: PRODUCT USED FOR UNKNOWN INDICATION
     Dosage: CYCLE 1
     Route: 065

REACTIONS (8)
  - Blood pressure increased [Recovering/Resolving]
  - Back pain [Recovered/Resolved]
  - Arthralgia [Recovered/Resolved]
  - Photosensitivity reaction [Recovered/Resolved]
  - Heart rate increased [Recovering/Resolving]
  - Dyspnoea [Recovered/Resolved]
  - Hypoxia [Recovered/Resolved]
  - Pyrexia [Recovered/Resolved]
